FAERS Safety Report 4628980-X (Version None)
Quarter: 2005Q2

REPORT INFORMATION
  Report Type: 
  Country: None (occurrence: None)
  Receive Date: 20050407
  Receipt Date: 20050330
  Transmission Date: 20051028
  Serious: Yes (Death)
  Sender: FDA-Public Use
  Company Number: 200512893GDDC

PATIENT
  Age: 56 Year
  Sex: Female

DRUGS (2)
  1. TAXOTERE [Suspect]
     Indication: BREAST CANCER
     Route: 042
  2. CIPROFLOXACIN [Concomitant]
     Indication: PYREXIA
     Route: 048
     Dates: start: 20041211, end: 20041213

REACTIONS (1)
  - RESPIRATORY DISTRESS [None]
